FAERS Safety Report 7712327-6 (Version None)
Quarter: 2011Q3

REPORT INFORMATION
  Report Type: 
  Country: None (occurrence: None)
  Receive Date: 20110826
  Receipt Date: 20110822
  Transmission Date: 20111222
  Serious: Yes (Death, Hospitalization)
  Sender: FDA-Public Use
  Company Number: IN-ROCHE-721699

PATIENT
  Sex: Male

DRUGS (15)
  1. PREDNISOLONE [Suspect]
     Route: 048
     Dates: start: 20100105, end: 20100709
  2. TACROLIMUS [Concomitant]
     Dates: start: 20100426, end: 20100709
  3. METFORMIN HCL [Concomitant]
     Dates: start: 20090331, end: 20100709
  4. IMDUR [Concomitant]
     Dates: start: 20070919, end: 20100709
  5. LEVEMIR [Concomitant]
  6. FOLVITE [Concomitant]
     Dates: start: 20100329, end: 20100709
  7. RAMACE [Concomitant]
     Dates: start: 20100105, end: 20100709
  8. BECOZYME FORTE [Concomitant]
  9. URIMAX [Concomitant]
     Dates: start: 20080204, end: 20100709
  10. SERTRALINE HYDROCHLORIDE [Concomitant]
     Dosage: DRUG: SERTA
  11. BELATACEPT [Suspect]
     Dosage: DOSE BLINDED
     Route: 042
     Dates: start: 20070528, end: 20100426
  12. CARVEDILOL [Concomitant]
     Dosage: DRUG REPORTED AS: CARDIVAS
  13. NOVORAPID [Concomitant]
     Dates: start: 20081110, end: 20100709
  14. MYCOPHENOLATE MOFETIL [Suspect]
     Route: 065
     Dates: start: 20100329, end: 20100709
  15. LOSACOR [Concomitant]
     Dates: start: 20090818, end: 20100709

REACTIONS (4)
  - CARDIAC ARREST [None]
  - SEPSIS [None]
  - TUBERCULOUS PLEURISY [None]
  - BRADYCARDIA [None]
